FAERS Safety Report 9931999 (Version 1)
Quarter: 2014Q1

REPORT INFORMATION
  Report Type: Spontaneous
  Country: US (occurrence: US)
  Receive Date: 20140228
  Receipt Date: 20140228
  Transmission Date: 20141002
  Serious: No
  Sender: FDA-Public Use
  Company Number: US-ABBVIE-13P-163-1109061-00

PATIENT
  Age: 74 Year
  Sex: Male
  Weight: 74 kg

DRUGS (4)
  1. ANDROGEL [Suspect]
     Indication: BLOOD TESTOSTERONE DECREASED
     Dosage: PUMP BOTTLE
     Route: 061
     Dates: start: 2010
  2. ANDROGEL [Suspect]
     Dosage: 3 PUMPS DAILY
     Route: 061
  3. DIGOXIN [Concomitant]
     Indication: HEART RATE IRREGULAR
  4. WARFARIN [Concomitant]
     Indication: HEART RATE IRREGULAR

REACTIONS (1)
  - Blood testosterone increased [Not Recovered/Not Resolved]
